FAERS Safety Report 8276721-X (Version None)
Quarter: 2012Q2

REPORT INFORMATION
  Report Type: 
  Country: None (occurrence: None)
  Receive Date: 20120412
  Receipt Date: 20120412
  Transmission Date: 20120825
  Serious: Yes (Life-Threatening, Hospitalization, Other)
  Sender: FDA-Public Use
  Company Number: None

PATIENT
  Sex: Female
  Weight: 92.532 kg

DRUGS (2)
  1. IBUPROFEN [Suspect]
     Indication: HEADACHE
     Dosage: 2 - 4
     Route: 048
  2. IBUPROFEN [Suspect]
     Indication: MYALGIA
     Dosage: 2 - 4
     Route: 048

REACTIONS (6)
  - SCAR [None]
  - HAEMORRHAGE [None]
  - RENAL FAILURE [None]
  - ANAEMIA [None]
  - NEPHRITIS [None]
  - DIALYSIS [None]
